FAERS Safety Report 20465999 (Version 1)
Quarter: 2022Q1

REPORT INFORMATION
  Report Type: Spontaneous
  Country: US (occurrence: US)
  Receive Date: 20220212
  Receipt Date: 20220212
  Transmission Date: 20220423
  Serious: Yes (Hospitalization, Other)
  Sender: FDA-Public Use
  Company Number: US-UNITED THERAPEUTICS-UNT-2022-002683

PATIENT
  Age: 10 Year
  Sex: Male

DRUGS (4)
  1. REMODULIN [Suspect]
     Active Substance: TREPROSTINIL
     Indication: Heritable pulmonary arterial hypertension
     Dosage: UNK, CONTINUING
     Route: 058
  2. REMODULIN [Suspect]
     Active Substance: TREPROSTINIL
     Dosage: 0.027 ?G/KG, CONTINUING
     Route: 058
  3. TADALAFIL [Concomitant]
     Active Substance: TADALAFIL
     Indication: Heritable pulmonary arterial hypertension
     Dosage: UNK
     Route: 065
  4. AMBRISENTAN [Concomitant]
     Active Substance: AMBRISENTAN
     Indication: Heritable pulmonary arterial hypertension
     Dosage: UNK
     Route: 065

REACTIONS (9)
  - Acquired Von Willebrand^s disease [Unknown]
  - Haemothorax [Recovered/Resolved]
  - Pericardial effusion [Unknown]
  - Pericardial haemorrhage [Unknown]
  - Syncope [Recovered/Resolved]
  - Right ventricular dysfunction [Recovering/Resolving]
  - Gastrointestinal disorder [Unknown]
  - Hypotension [Unknown]
  - Epistaxis [Recovered/Resolved]
